FAERS Safety Report 5731958-6 (Version None)
Quarter: 2008Q2

REPORT INFORMATION
  Report Type: 
  Country: None (occurrence: None)
  Receive Date: 20080508
  Receipt Date: 20080428
  Transmission Date: 20081010
  Serious: Yes (Other)
  Sender: FDA-Public Use
  Company Number: US-TYCO HEALTHCARE/MALLINCKRODT-T200701627

PATIENT

DRUGS (6)
  1. OPTIMARK [Suspect]
     Indication: NUCLEAR MAGNETIC RESONANCE IMAGING
     Dosage: 20 ML, SINGLE
     Dates: start: 20060126, end: 20060126
  2. OPTIMARK [Suspect]
     Dosage: UNK, SINGLE
     Dates: start: 20060918, end: 20060918
  3. MAGNEVIST [Suspect]
     Indication: SCAN
     Dosage: 20 ML, SINGLE
     Dates: start: 20051104, end: 20051104
  4. OMNISCAN [Suspect]
     Indication: SCAN
  5. MULTIHANCE [Suspect]
     Indication: SCAN
  6. PROHANCE [Suspect]
     Indication: SCAN

REACTIONS (1)
  - NEPHROGENIC SYSTEMIC FIBROSIS [None]
